FAERS Safety Report 14325097 (Version 3)
Quarter: 2018Q2

REPORT INFORMATION
  Report Type: Report from Study
  Country: US (occurrence: US)
  Receive Date: 20171226
  Receipt Date: 20180628
  Transmission Date: 20180711
  Serious: No
  Sender: FDA-Public Use
  Company Number: US-CLOVIS ONCOLOGY-CLO-2017-001310

PATIENT
  Sex: Female

DRUGS (3)
  1. RUBRACA [Suspect]
     Active Substance: RUCAPARIB CAMSYLATE
     Dosage: 600 MG, BID
     Route: 048
     Dates: start: 20171127, end: 20171220
  2. RUBRACA [Suspect]
     Active Substance: RUCAPARIB CAMSYLATE
     Dosage: 500 MG, BID
     Route: 048
     Dates: start: 20171221
  3. RUBRACA [Suspect]
     Active Substance: RUCAPARIB CAMSYLATE
     Indication: OVARIAN CANCER
     Dosage: 600 MG, BID
     Route: 048
     Dates: start: 20171025, end: 20171108

REACTIONS (15)
  - Dry skin [Not Recovered/Not Resolved]
  - Influenza [Unknown]
  - Nausea [Not Recovered/Not Resolved]
  - Fatigue [Not Recovered/Not Resolved]
  - Decreased appetite [Unknown]
  - Neuralgia [Unknown]
  - Vomiting [Unknown]
  - Drug dose omission [Unknown]
  - Abdominal discomfort [Unknown]
  - Hepatic enzyme increased [Recovered/Resolved]
  - Weight decreased [Unknown]
  - Sinus congestion [Unknown]
  - Skin exfoliation [Unknown]
  - Cough [Not Recovered/Not Resolved]
  - Angular cheilitis [Unknown]

NARRATIVE: CASE EVENT DATE: 2017
